FAERS Safety Report 24667168 (Version 1)
Quarter: 2024Q4

REPORT INFORMATION
  Report Type: Spontaneous
  Country: US (occurrence: US)
  Receive Date: 20241126
  Receipt Date: 20241126
  Transmission Date: 20250115
  Serious: No
  Sender: APELLIS PHARMACEUTICALS
  Company Number: US-APELLIS-2024-APL-0001552

PATIENT

DRUGS (3)
  1. SYFOVRE [Suspect]
     Active Substance: PEGCETACOPLAN
     Indication: Dry age-related macular degeneration
     Dosage: DISCONTINUED TREATMENT FOR A FEW MONTHS DUE TO EYE INFECTION, THEN RESTARTED.
     Route: 065
  2. SYFOVRE [Suspect]
     Active Substance: PEGCETACOPLAN
     Dosage: RESTARTED TREATMENT, THEN STOPPED A 2ND TIME AFTER GETTING TIRED OF RECEIVING INJECTIONS
     Route: 065
  3. SYFOVRE [Suspect]
     Active Substance: PEGCETACOPLAN
     Dosage: RESTARTED TREATMENT IN FEB-2024
     Route: 065

REACTIONS (4)
  - Eye infection [Recovered/Resolved]
  - COVID-19 [Recovered/Resolved]
  - Sinusitis [Recovered/Resolved]
  - Intentional dose omission [Unknown]
